FAERS Safety Report 5370106-1 (Version None)
Quarter: 2007Q2

REPORT INFORMATION
  Report Type: 
  Country: None (occurrence: None)
  Receive Date: 20070613
  Receipt Date: 20061127
  Transmission Date: 20071010
  Serious: Yes (Other)
  Sender: FDA-Public Use
  Company Number: PHEH2006US14691

PATIENT
  Age: 94 Year
  Sex: Female

DRUGS (1)
  1. EXELON [Suspect]
     Indication: DEMENTIA

REACTIONS (3)
  - CONFUSIONAL STATE [None]
  - CONVULSION [None]
  - SYNCOPE [None]
